FAERS Safety Report 8979150 (Version 2)
Quarter: 2013Q1

REPORT INFORMATION
  Report Type: Spontaneous
  Country: US (occurrence: US)
  Receive Date: 20121221
  Receipt Date: 20130211
  Transmission Date: 20140127
  Serious: Yes (Death)
  Sender: FDA-Public Use
  Company Number: US-GLAXOSMITHKLINE-A1006107A

PATIENT
  Age: 83 Year
  Sex: Male

DRUGS (23)
  1. VOTRIENT [Suspect]
     Indication: PRODUCT USED FOR UNKNOWN INDICATION
     Dosage: 200MG UNKNOWN
     Route: 065
     Dates: start: 20120815
  2. ZOLOFT [Concomitant]
     Dosage: 50MG PER DAY
  3. NORVASC [Concomitant]
     Dosage: 5MG PER DAY
  4. PRILOSEC [Concomitant]
     Dosage: 20MG PER DAY
  5. CARDURA [Concomitant]
     Dosage: 4MG PER DAY
  6. FERGON [Concomitant]
     Dosage: 324MG PER DAY
  7. MEGACE [Concomitant]
     Dosage: 400MG PER DAY
  8. OXYCODONE [Concomitant]
  9. OXYCONTIN [Concomitant]
     Indication: PAIN
  10. NEURONTIN [Concomitant]
     Indication: PAIN
  11. ACETAMINOPHEN [Concomitant]
  12. BISACODYL [Concomitant]
  13. FLEET ENEMA [Concomitant]
  14. MILK OF MAGNESIA [Concomitant]
  15. FERROUS GLUCONATE [Concomitant]
     Dosage: 324MG TWICE PER DAY
  16. DOXAZOSIN [Concomitant]
  17. OMEPRAZOLE [Concomitant]
  18. AMLODIPINE [Concomitant]
  19. SERTRALINE [Concomitant]
  20. MORPHINE [Concomitant]
  21. METROGEL [Concomitant]
     Route: 061
  22. RADIATION [Concomitant]
  23. MAALOX [Concomitant]
     Dosage: 30ML AS REQUIRED
     Route: 048

REACTIONS (18)
  - Paraneoplastic syndrome [Unknown]
  - Disease progression [Fatal]
  - Asthenia [Unknown]
  - Decreased appetite [Unknown]
  - Back pain [Unknown]
  - Epigastric discomfort [Unknown]
  - Cough [Unknown]
  - Productive cough [Unknown]
  - Dyspepsia [Unknown]
  - Night sweats [Unknown]
  - Dizziness [Unknown]
  - Hypoaesthesia [Unknown]
  - Arthralgia [Unknown]
  - Eyelid ptosis [Unknown]
  - Pain [Unknown]
  - Extrasystoles [Unknown]
  - Oedema peripheral [Unknown]
  - Leukocytosis [Unknown]
